FAERS Safety Report 4754324-9 (Version None)
Quarter: 2005Q3

REPORT INFORMATION
  Report Type: 
  Country: None (occurrence: None)
  Receive Date: 20050825
  Receipt Date: 20050825
  Transmission Date: 20060218
  Serious: Yes (Death)
  Sender: FDA-Public Use
  Company Number: None

PATIENT
  Age: 84 Year
  Sex: Female
  Weight: 75 kg

DRUGS (1)
  1. TAMOXIFEN    20MG [Suspect]
     Indication: BREAST CANCER
     Dosage: 20MG  QDAY  P.O.
     Route: 048
     Dates: start: 20000617, end: 20040908

REACTIONS (1)
  - RESPIRATORY FAILURE [None]
